FAERS Safety Report 7471541-8 (Version None)
Quarter: 2011Q2

REPORT INFORMATION
  Report Type: 
  Country: None (occurrence: None)
  Receive Date: 20110511
  Receipt Date: 20110502
  Transmission Date: 20111010
  Serious: No
  Sender: FDA-Public Use
  Company Number: US-ROXANE LABORATORIES, INC.-2011-RO-00537RO

PATIENT
  Sex: Male

DRUGS (3)
  1. CYCLOPHOSPHAMIDE [Suspect]
     Indication: CHRONIC LYMPHOCYTIC LEUKAEMIA
     Dosage: 50 MG
     Route: 048
     Dates: start: 20100601
  2. VITAMIN B COMPLEX CAP [Concomitant]
  3. ALPRAZOLAM [Concomitant]
     Indication: ANXIETY

REACTIONS (1)
  - NEUROPATHY PERIPHERAL [None]
